FAERS Safety Report 5528277-X (Version None)
Quarter: 2007Q4

REPORT INFORMATION
  Report Type: 
  Country: None (occurrence: None)
  Receive Date: 20071128
  Receipt Date: 20071115
  Transmission Date: 20080405
  Serious: Yes (Other)
  Sender: FDA-Public Use
  Company Number: IE-ASTRAZENECA-2007GB01826

PATIENT
  Age: 25795 Day
  Sex: Female
  Weight: 100 kg

DRUGS (5)
  1. CRESTOR [Suspect]
     Indication: BLOOD CHOLESTEROL INCREASED
     Route: 048
     Dates: start: 20070716, end: 20070722
  2. ADALAT CC [Concomitant]
     Indication: HYPERTENSION
     Route: 048
     Dates: start: 20030101
  3. LEVOTHYROXINE SODIUM [Concomitant]
     Indication: HYPOTHYROIDISM
     Dates: start: 20030101
  4. ASPIRIN [Concomitant]
     Dates: start: 20030101
  5. COVERSYL [Concomitant]
     Indication: HYPERTENSION
     Dates: start: 20030101

REACTIONS (1)
  - HYPERSENSITIVITY [None]
